FAERS Safety Report 7262559-9 (Version None)
Quarter: 2011Q1

REPORT INFORMATION
  Report Type: 
  Country: None (occurrence: None)
  Receive Date: 20110130
  Receipt Date: 20101129
  Transmission Date: 20110831
  Serious: No
  Sender: FDA-Public Use
  Company Number: US-ABBOTT-10P-163-0688388-00

PATIENT
  Sex: Female
  Weight: 82.628 kg

DRUGS (3)
  1. LISINOPRIL [Concomitant]
     Indication: HYPERTENSION
  2. LIPITOR [Concomitant]
     Indication: HYPERCHOLESTEROLAEMIA
  3. HUMIRA [Suspect]
     Indication: CROHN'S DISEASE
     Dates: start: 20101101

REACTIONS (3)
  - PAIN [None]
  - INCORRECT STORAGE OF DRUG [None]
  - DEVICE INEFFECTIVE [None]
